FAERS Safety Report 6710076-4 (Version None)
Quarter: 2010Q2

REPORT INFORMATION
  Report Type: 
  Country: None (occurrence: None)
  Receive Date: 20100504
  Receipt Date: 20100422
  Transmission Date: 20101027
  Serious: Yes (Hospitalization, Other)
  Sender: FDA-Public Use
  Company Number: US-ELI_LILLY_AND_COMPANY-US201004006254

PATIENT
  Sex: Female
  Weight: 82.086 kg

DRUGS (9)
  1. BYETTA [Suspect]
     Indication: TYPE 2 DIABETES MELLITUS
     Dosage: 5 UG, 2/D
  2. BYETTA [Suspect]
     Dosage: 10 UG, 2/D
  3. METFORMIN [Concomitant]
  4. LANTUS [Concomitant]
     Indication: TYPE 2 DIABETES MELLITUS
     Dosage: 24 U, DAILY (1/D)
     Dates: start: 20100101
  5. APIDRA [Concomitant]
     Indication: TYPE 2 DIABETES MELLITUS
     Dosage: 6 U, UNK
     Dates: start: 20100101
  6. VERAPAMIL [Concomitant]
  7. ACE INHIBITOR NOS [Concomitant]
  8. AUGMENTIN '125' [Concomitant]
  9. COUMADIN [Concomitant]

REACTIONS (19)
  - BLOOD BILIRUBIN INCREASED [None]
  - BLOOD GLUCOSE INCREASED [None]
  - BLOOD POTASSIUM DECREASED [None]
  - BLOOD URINE PRESENT [None]
  - CONJUNCTIVAL DISCOLOURATION [None]
  - DIARRHOEA [None]
  - DRUG HYPERSENSITIVITY [None]
  - GOITRE [None]
  - INTERNATIONAL NORMALISED RATIO INCREASED [None]
  - JAUNDICE [None]
  - KIDNEY INFECTION [None]
  - NAUSEA [None]
  - NEPHROLITHIASIS [None]
  - PANCREATIC CARCINOMA METASTATIC [None]
  - THYROID CANCER [None]
  - URINE ABNORMALITY [None]
  - URINE ODOUR ABNORMAL [None]
  - WEIGHT DECREASED [None]
  - YELLOW SKIN [None]
